FAERS Safety Report 6754835-0 (Version None)
Quarter: 2010Q2

REPORT INFORMATION
  Report Type: 
  Country: None (occurrence: None)
  Receive Date: 20100603
  Receipt Date: 20100526
  Transmission Date: 20101027
  Serious: Yes (Hospitalization)
  Sender: FDA-Public Use
  Company Number: US-GENENTECH-302465

PATIENT
  Age: 65 Year
  Sex: Male

DRUGS (11)
  1. RANIBIZUMAB [Suspect]
     Indication: MACULAR DEGENERATION
     Dosage: UNK
     Dates: start: 20081103
  2. RANIBIZUMAB [Suspect]
     Dosage: UNK
     Dates: start: 20081203
  3. RANIBIZUMAB [Suspect]
     Dosage: UNK
     Dates: start: 20090107
  4. RANIBIZUMAB [Suspect]
     Dosage: UNK
     Dates: start: 20090401
  5. ARTIFICIAL TEARS [Concomitant]
     Indication: DRY EYE
     Dosage: UNK
     Dates: start: 20081001
  6. ENZYME [Concomitant]
     Indication: DRUG USE FOR UNKNOWN INDICATION
     Dosage: UNK
     Dates: start: 20081001
  7. CONCOMITANT DRUGS [Concomitant]
     Indication: DRUG USE FOR UNKNOWN INDICATION
     Dosage: UNK
     Dates: start: 20081001
  8. VITAMIN C [Concomitant]
     Indication: DRUG USE FOR UNKNOWN INDICATION
     Dosage: UNK
     Dates: start: 20081001
  9. CEPHALEXIN [Concomitant]
     Indication: SINUSITIS
     Dosage: UNK
     Dates: start: 20090101
  10. MOTRIN [Concomitant]
     Indication: HEADACHE
     Dosage: UNK
     Dates: start: 20090301
  11. IBUPROFEN [Concomitant]
     Indication: HEADACHE
     Dosage: UNK
     Dates: start: 20090301

REACTIONS (1)
  - ACUTE MYOCARDIAL INFARCTION [None]
